FAERS Safety Report 9507468 (Version 1)
Quarter: 2013Q1

REPORT INFORMATION
  Report Type: Spontaneous
  Country: US (occurrence: None)
  Receive Date: 20130305
  Receipt Date: 20130305
  Transmission Date: 20140127
  Serious: Yes (Other)
  Sender: FDA-Public Use
  Company Number: 163-21880-12111211

PATIENT
  Age: 64 Year
  Sex: Male
  Weight: 110.68 kg

DRUGS (11)
  1. REVLIMID (LENALIDOMIDE) (25 MILLIGRAM, CAPSULES) [Suspect]
     Indication: PLASMA CELL MYELOMA
     Route: 048
     Dates: start: 20120301, end: 20120315
  2. ADVAIR (SERETIDE MITE) [Concomitant]
  3. ASPIRIN (ACETYLSALICYLIC ACID) [Concomitant]
  4. CENTRIUM SILVER (CENTRUM SILVER) [Concomitant]
  5. CO Q-10 (UBIDECARENONE) [Concomitant]
  6. DOCUSATE SODIUM (DOCUSATE SODIUM) [Concomitant]
  7. FENOFIBRATE (FENOFBRATE) [Concomitant]
  8. FINASTERIDE (FINASTERIDE) [Concomitant]
  9. FISH OIL (FISH OIL) [Concomitant]
  10. GABAPENTIN (GABAPENTIN) [Concomitant]
  11. LIPITOR (ATORVASTATIN) [Concomitant]

REACTIONS (3)
  - Bone marrow failure [None]
  - Rash generalised [None]
  - Dry skin [None]
